FAERS Safety Report 19422744 (Version 1)
Quarter: 2021Q2

REPORT INFORMATION
  Report Type: Spontaneous
  Country: US (occurrence: US)
  Receive Date: 20210616
  Receipt Date: 20210616
  Transmission Date: 20210717
  Serious: Yes (Life-Threatening)
  Sender: FDA-Public Use
  Company Number: None

PATIENT
  Age: 72 Year
  Sex: Male
  Weight: 92.99 kg

DRUGS (1)
  1. SULFAMETHOXAZOLE/TRIMETHOPRIM (SULFAMETHOAZOLE 800MG/TRIMETHOPRIM 160M [Suspect]
     Active Substance: SULFAMETHOXAZOLE\TRIMETHOPRIM
     Indication: URINARY TRACT INFECTION
     Route: 048
     Dates: start: 20210412, end: 20210420

REACTIONS (6)
  - Nephritis [None]
  - Hepatic enzyme increased [None]
  - Thrombocytopenia [None]
  - Asthenia [None]
  - Dizziness [None]
  - Hypophagia [None]

NARRATIVE: CASE EVENT DATE: 20210424
